FAERS Safety Report 5006546-X (Version None)
Quarter: 2006Q2

REPORT INFORMATION
  Report Type: 
  Country: None (occurrence: None)
  Receive Date: 20060516
  Receipt Date: 20060504
  Transmission Date: 20061013
  Serious: Yes (Other)
  Sender: FDA-Public Use
  Company Number: 2006PV011521

PATIENT
  Age: 53 Year
  Sex: Male
  Weight: 106.1417 kg

DRUGS (11)
  1. BYETTA [Suspect]
     Indication: DIABETES MELLITUS NON-INSULIN-DEPENDENT
     Dosage: SEE IMAGE
     Route: 058
     Dates: start: 20051004, end: 20060309
  2. BYETTA [Suspect]
     Indication: DIABETES MELLITUS NON-INSULIN-DEPENDENT
     Dosage: SEE IMAGE
     Route: 058
     Dates: start: 20050829
  3. ALTACE [Suspect]
     Dosage: 10 MG; QD;
     Dates: end: 20051004
  4. METFORMIN [Concomitant]
  5. AVANDIA [Concomitant]
  6. LIPITOR [Concomitant]
  7. ZYRTEC [Concomitant]
  8. CIALIS [Concomitant]
  9. VIAGRA [Concomitant]
  10. INSULIN INSULATARD NPH NORDISK [Concomitant]
  11. TRAZODONE HCL [Concomitant]

REACTIONS (12)
  - AMYOTROPHIC LATERAL SCLEROSIS [None]
  - CEREBROVASCULAR ACCIDENT [None]
  - COUGH [None]
  - DYSARTHRIA [None]
  - DYSPHAGIA [None]
  - FALL [None]
  - HYPOTENSION [None]
  - MUSCLE TWITCHING [None]
  - NASOPHARYNGEAL DISORDER [None]
  - STRESS [None]
  - SYNCOPE [None]
  - WEIGHT DECREASED [None]
